FAERS Safety Report 10889440 (Version 1)
Quarter: 2015Q1

REPORT INFORMATION
  Report Type: Report from Study
  Country: US (occurrence: US)
  Receive Date: 20150305
  Receipt Date: 20150305
  Transmission Date: 20150721
  Serious: Yes (Other)
  Sender: FDA-Public Use
  Company Number: US-GILEAD-2015-0140190

PATIENT
  Age: 60 Year
  Sex: Female

DRUGS (3)
  1. COLCRYS [Concomitant]
     Active Substance: COLCHICINE
  2. IBUPROFEN. [Concomitant]
     Active Substance: IBUPROFEN
  3. LEDIPASVIR/SOFOSBUVIR [Suspect]
     Active Substance: LEDIPASVIR\SOFOSBUVIR
     Indication: CHRONIC HEPATITIS C
     Dosage: 1 DF, UNK
     Route: 048
     Dates: start: 20150122

REACTIONS (2)
  - Pericarditis [Unknown]
  - Vitamin D decreased [Unknown]
